FAERS Safety Report 11137048 (Version 10)
Quarter: 2015Q3

REPORT INFORMATION
  Report Type: Spontaneous
  Country: US (occurrence: US)
  Receive Date: 20150526
  Receipt Date: 20150915
  Transmission Date: 20151125
  Serious: Yes (Hospitalization, Other)
  Sender: FDA-Public Use
  Company Number: US-GLAXOSMITHKLINE INC.-US2015GSK070989

PATIENT
  Age: 70 Year
  Sex: Female

DRUGS (6)
  1. FLOLAN [Suspect]
     Active Substance: EPOPROSTENOL SODIUM
     Dosage: 6 NG/KG/MIN (UNK CONCENTRATION AND PUMP RATE, VIAL STRENGTH 0.5 MG, CO
     Route: 042
  2. FLOLAN [Suspect]
     Active Substance: EPOPROSTENOL SODIUM
     Indication: PULMONARY ARTERIAL HYPERTENSION
     Dosage: 6 NG/KG/MIN (CONCENTRATION 10,000 NG/ML, PUMP RATE 73 ML/DAY, VIAL STRENGTH 0.5 MG), CO
     Route: 042
     Dates: start: 20150509
  3. REVATIO [Concomitant]
     Active Substance: SILDENAFIL CITRATE
  4. FLOLAN [Suspect]
     Active Substance: EPOPROSTENOL SODIUM
     Dosage: 22 NG/KG/MIN, CO
     Dates: end: 201508
  5. FLOLAN [Suspect]
     Active Substance: EPOPROSTENOL SODIUM
     Dosage: 6 NG/KG/MIN (CONCENTRATION 10,000 NG/ML, 73 ML/DAY, VIAL STRENGTH 0.5 MG), CO
     Route: 042
     Dates: start: 20150509
  6. SILDENAFIL. [Concomitant]
     Active Substance: SILDENAFIL

REACTIONS (19)
  - Fluid overload [Recovering/Resolving]
  - Chronic obstructive pulmonary disease [Unknown]
  - Fluid retention [Unknown]
  - General physical health deterioration [Unknown]
  - Dehydration [Unknown]
  - Dialysis [Recovered/Resolved]
  - Diarrhoea [Recovered/Resolved]
  - Dialysis related complication [Unknown]
  - Joint effusion [Unknown]
  - Malaise [Recovering/Resolving]
  - Labile blood pressure [Unknown]
  - Hospitalisation [Recovered/Resolved]
  - Loss of consciousness [Recovered/Resolved]
  - Fluid imbalance [Unknown]
  - Left ventricular dysfunction [Unknown]
  - Diastolic dysfunction [Unknown]
  - Oxygen supplementation [Unknown]
  - Dyspnoea [Recovering/Resolving]
  - Presyncope [Unknown]

NARRATIVE: CASE EVENT DATE: 20150514
